FAERS Safety Report 8588763-5 (Version None)
Quarter: 2012Q3

REPORT INFORMATION
  Report Type: 
  Country: None (occurrence: None)
  Receive Date: 20120813
  Receipt Date: 20120810
  Transmission Date: 20120928
  Serious: Yes (Death, Hospitalization, Other)
  Sender: FDA-Public Use
  Company Number: PHHY2012NL049168

PATIENT
  Sex: Male

DRUGS (4)
  1. ZOMETA [Suspect]
     Dosage: 4 MG/100 ML
     Dates: start: 20120313
  2. ZOMETA [Suspect]
     Indication: PROSTATE CANCER METASTATIC
     Dosage: 4 MG/100 ML
  3. ZOMETA [Suspect]
     Dosage: 4 MG/100 ML
     Dates: start: 20101005
  4. ZOMETA [Suspect]
     Dosage: 4 MG/100 ML
     Dates: start: 20111220

REACTIONS (5)
  - DECREASED APPETITE [None]
  - METASTASES TO LIVER [None]
  - VOMITING [None]
  - NEOPLASM MALIGNANT [None]
  - NAUSEA [None]
